FAERS Safety Report 10920180 (Version 25)
Quarter: 2019Q1

REPORT INFORMATION
  Report Type: Report from Study
  Country: CA (occurrence: CA)
  Receive Date: 20150317
  Receipt Date: 20190301
  Transmission Date: 20190417
  Serious: Yes (Other)
  Sender: FDA-Public Use
  Company Number: PHHY2015CA028279

PATIENT
  Age: 2 Year
  Sex: Female

DRUGS (30)
  1. ILARIS [Suspect]
     Active Substance: CANAKINUMAB
     Dosage: 50 MG, Q8 WEEKS
     Route: 058
     Dates: start: 2014
  2. ILARIS [Suspect]
     Active Substance: CANAKINUMAB
     Dosage: UNK
     Route: 065
     Dates: start: 20171006
  3. ILARIS [Suspect]
     Active Substance: CANAKINUMAB
     Dosage: UNK
     Route: 065
     Dates: start: 20180320
  4. ILARIS [Suspect]
     Active Substance: CANAKINUMAB
     Dosage: 50 MG, Q8 WEEKS
     Route: 058
     Dates: start: 20150625
  5. ILARIS [Suspect]
     Active Substance: CANAKINUMAB
     Dosage: UNK
     Route: 058
     Dates: start: 20161229
  6. ILARIS [Suspect]
     Active Substance: CANAKINUMAB
     Dosage: 50 MG, UNK (Q8W)
     Route: 058
     Dates: start: 20181227
  7. ILARIS [Suspect]
     Active Substance: CANAKINUMAB
     Indication: MUCKLE-WELLS SYNDROME
     Dosage: 25 OT, ONE TIME DOSE
     Route: 058
     Dates: start: 20140525
  8. ILARIS [Suspect]
     Active Substance: CANAKINUMAB
     Dosage: 25 OT, ONE TIME DOSE
     Route: 058
  9. ILARIS [Suspect]
     Active Substance: CANAKINUMAB
     Dosage: UNK
     Route: 058
     Dates: start: 20150305
  10. ILARIS [Suspect]
     Active Substance: CANAKINUMAB
     Dosage: 50 OT, EVERY 8 WEEKS
     Route: 058
     Dates: start: 20180517
  11. ILARIS [Suspect]
     Active Substance: CANAKINUMAB
     Dosage: 50 MG, Q8 WEEKS
     Route: 058
     Dates: start: 20151015
  12. ILARIS [Suspect]
     Active Substance: CANAKINUMAB
     Dosage: UNK
     Route: 058
     Dates: start: 20160328
  13. ILARIS [Suspect]
     Active Substance: CANAKINUMAB
     Dosage: 50 MG, Q8 WEEKS
     Route: 058
     Dates: start: 20160519
  14. ILARIS [Suspect]
     Active Substance: CANAKINUMAB
     Dosage: UNK
     Route: 065
     Dates: start: 20170810
  15. ILARIS [Suspect]
     Active Substance: CANAKINUMAB
     Dosage: 50 MG, EVERY 8 WEEKS
     Route: 058
  16. ILARIS [Suspect]
     Active Substance: CANAKINUMAB
     Dosage: UNK
     Route: 058
     Dates: start: 20160204
  17. ILARIS [Suspect]
     Active Substance: CANAKINUMAB
     Dosage: UNK
     Route: 058
     Dates: start: 20160908
  18. ILARIS [Suspect]
     Active Substance: CANAKINUMAB
     Dosage: UNK
     Route: 065
     Dates: start: 20171130
  19. ILARIS [Suspect]
     Active Substance: CANAKINUMAB
     Dosage: UNK
     Route: 065
     Dates: start: 20180125
  20. ILARIS [Suspect]
     Active Substance: CANAKINUMAB
     Dosage: UNK
     Route: 065
     Dates: start: 20180320
  21. ILARIS [Suspect]
     Active Substance: CANAKINUMAB
     Dosage: 50 OT, EVERY 8 WEEKS
     Route: 058
     Dates: start: 20180712
  22. ILARIS [Suspect]
     Active Substance: CANAKINUMAB
     Dosage: 50 MG, Q8 WEEKS
     Route: 058
  23. ILARIS [Suspect]
     Active Substance: CANAKINUMAB
     Dosage: UNK
     Route: 058
  24. ILARIS [Suspect]
     Active Substance: CANAKINUMAB
     Dosage: UNK
     Route: 058
     Dates: start: 20170223
  25. ILARIS [Suspect]
     Active Substance: CANAKINUMAB
     Dosage: UNK
     Route: 065
     Dates: start: 20170420
  26. ILARIS [Suspect]
     Active Substance: CANAKINUMAB
     Dosage: 50 OT, EVERY 8 WEEKS
     Route: 058
     Dates: start: 20180906
  27. ILARIS [Suspect]
     Active Substance: CANAKINUMAB
     Dosage: 50 OT, 8 WEEKS
     Route: 058
     Dates: start: 20181101
  28. ILARIS [Suspect]
     Active Substance: CANAKINUMAB
     Dosage: 50 MG, Q8 WEEKS
     Route: 058
     Dates: start: 20151210
  29. ILARIS [Suspect]
     Active Substance: CANAKINUMAB
     Dosage: UNK
     Route: 058
     Dates: start: 20160714
  30. ILARIS [Suspect]
     Active Substance: CANAKINUMAB
     Dosage: UNK
     Route: 058
     Dates: start: 20161103

REACTIONS (4)
  - Cough [Recovered/Resolved]
  - Blood pressure decreased [Unknown]
  - Oral herpes [Recovering/Resolving]
  - Prescribed underdose [Unknown]

NARRATIVE: CASE EVENT DATE: 2015
